FAERS Safety Report 4789914-0 (Version None)
Quarter: 2005Q4

REPORT INFORMATION
  Report Type: 
  Country: None (occurrence: None)
  Receive Date: 20051006
  Receipt Date: 20050916
  Transmission Date: 20060501
  Serious: Yes (Death, Hospitalization)
  Sender: FDA-Public Use
  Company Number: NO-MERCK-0509NOR00018

PATIENT
  Age: 73 Year
  Sex: Male

DRUGS (7)
  1. VIOXX [Suspect]
     Indication: OSTEOARTHRITIS
     Route: 048
     Dates: start: 20010501, end: 20031016
  2. PREDNISOLONE [Concomitant]
     Indication: ARTHROPOD STING
     Route: 048
  3. FLUTICASONE PROPIONATE AND SALMETEROL XINAFOATE [Concomitant]
     Route: 055
  4. FLUTICASONE PROPIONATE [Concomitant]
     Route: 061
  5. CYANOCOBALAMIN [Concomitant]
     Route: 065
  6. TERBUTALINE SULFATE [Concomitant]
     Route: 055
  7. RANITIDINE HYDROCHLORIDE [Concomitant]
     Indication: OESOPHAGITIS
     Route: 048

REACTIONS (2)
  - DEATH [None]
  - PULMONARY EMBOLISM [None]
